FAERS Safety Report 25394557 (Version 2)
Quarter: 2025Q3

REPORT INFORMATION
  Report Type: Report from Study
  Country: US (occurrence: US)
  Receive Date: 20250604
  Receipt Date: 20250926
  Transmission Date: 20251020
  Serious: No
  Sender: ABBVIE
  Company Number: US-ABBVIE-6310596

PATIENT
  Age: 61 Year
  Sex: Female

DRUGS (1)
  1. SKYRIZI [Suspect]
     Active Substance: RISANKIZUMAB-RZAA
     Indication: Colitis ulcerative
     Route: 058
     Dates: start: 20241105

REACTIONS (1)
  - Pain in extremity [Not Recovered/Not Resolved]
